FAERS Safety Report 4372735-0 (Version None)
Quarter: 2004Q2

REPORT INFORMATION
  Report Type: 
  Country: None (occurrence: None)
  Receive Date: 20040603
  Receipt Date: 20040518
  Transmission Date: 20050107
  Serious: Yes (Death)
  Sender: FDA-Public Use
  Company Number: F01200300866

PATIENT
  Age: 67 Year
  Sex: Male

DRUGS (7)
  1. (OXALIPLATIN) - SOLUTION - 130 MG/M2 [Suspect]
     Indication: NON-SMALL CELL LUNG CANCER STAGE IIIB
     Dosage: 130 MG/M2 ON DAY 2, Q3W, INTRAVENOUS NOS
     Route: 042
     Dates: start: 20030807, end: 20030807
  2. (OXALIPLATIN) - SOLUTION - 130 MG/M2 [Suspect]
     Indication: NON-SMALL CELL LUNG CANCER STAGE IV
     Dosage: 130 MG/M2 ON DAY 2, Q3W, INTRAVENOUS NOS
     Route: 042
     Dates: start: 20030807, end: 20030807
  3. PACLITAXEL [Suspect]
     Dosage: 200 MG/M2 ON DAY 1 Q3W, INTRAVENOUS NOS
     Route: 042
     Dates: start: 20030806, end: 20030806
  4. ESPIDIFEN (IBUPROFEN) [Concomitant]
  5. NOLOTIL (METAMIZOLE MAGNESIUM) [Concomitant]
  6. EPREX [Concomitant]
  7. LACTOFERRINA (IRON SUCCINYL-PROTEIN COMPLEX) [Concomitant]

REACTIONS (16)
  - ANAEMIA [None]
  - ATELECTASIS [None]
  - BLOOD CREATININE DECREASED [None]
  - BLOOD GLUCOSE DECREASED [None]
  - BLOOD POTASSIUM DECREASED [None]
  - COMPUTERISED TOMOGRAM ABNORMAL [None]
  - LYMPHADENOPATHY [None]
  - MALIGNANT NEOPLASM PROGRESSION [None]
  - MASS [None]
  - NON-SMALL CELL LUNG CANCER [None]
  - PLATELET COUNT INCREASED [None]
  - PLEURAL EFFUSION [None]
  - PNEUMONIA [None]
  - RENAL CYST [None]
  - RESPIRATORY FAILURE [None]
  - TUMOUR MARKER INCREASED [None]
